FAERS Safety Report 10688176 (Version 2)
Quarter: 2015Q2

REPORT INFORMATION
  Report Type: Spontaneous
  Country: FR (occurrence: None)
  Receive Date: 20141231
  Receipt Date: 20150506
  Transmission Date: 20150821
  Serious: Yes (Hospitalization, Other)
  Sender: FDA-Public Use
  Company Number: ADR-2014-02446

PATIENT

DRUGS (2)
  1. LIORESAL [Suspect]
     Active Substance: BACLOFEN
     Indication: MUSCLE SPASTICITY
  2. PARACETAMOL [Concomitant]
     Active Substance: ACETAMINOPHEN

REACTIONS (9)
  - Psychosomatic disease [None]
  - Pain in extremity [None]
  - Somnolence [None]
  - Irritability [None]
  - Altered state of consciousness [None]
  - Epilepsy [None]
  - Disorientation [None]
  - Suicide attempt [None]
  - Visual impairment [None]
